FAERS Safety Report 11225605 (Version 1)
Quarter: 2015Q2

REPORT INFORMATION
  Report Type: Spontaneous
  Country: US (occurrence: None)
  Receive Date: 20150626
  Receipt Date: 20150626
  Transmission Date: 20150821
  Serious: Yes (Life-Threatening, Hospitalization)
  Sender: FDA-Public Use
  Company Number: None

PATIENT
  Age: 31 Year
  Sex: Female
  Weight: 54.43 kg

DRUGS (5)
  1. IRON SUPPLEMENT [Concomitant]
     Active Substance: IRON
  2. POST-NATAL VITAMINS [Concomitant]
  3. VITAMIN D3 [Concomitant]
     Active Substance: CHOLECALCIFEROL
  4. STOOL SOFTENER [Concomitant]
     Active Substance: DOCUSATE CALCIUM
  5. PARAGARD T 380A [Suspect]
     Active Substance: COPPER
     Dates: start: 20121017, end: 20140808

REACTIONS (6)
  - Pregnancy with contraceptive device [None]
  - Caesarean section [None]
  - Small intestinal obstruction [None]
  - Device dislocation [None]
  - Abdominal adhesions [None]
  - Maternal exposure during pregnancy [None]

NARRATIVE: CASE EVENT DATE: 20140808
